FAERS Safety Report 4908484-7 (Version None)
Quarter: 2006Q1

REPORT INFORMATION
  Report Type: 
  Country: None (occurrence: None)
  Receive Date: 20060210
  Receipt Date: 20050729
  Transmission Date: 20060701
  Serious: No
  Sender: FDA-Public Use
  Company Number: US-GLAXOSMITHKLINE-A0568295A

PATIENT
  Age: 55 Year
  Sex: Female

DRUGS (7)
  1. PAXIL CR [Suspect]
     Indication: DEPRESSION
     Dosage: 25MG PER DAY
     Route: 048
     Dates: start: 20040801
  2. AMBIEN [Suspect]
     Indication: SLEEP DISORDER
     Route: 065
  3. SEREVENT [Concomitant]
  4. PULMICORT [Concomitant]
  5. NASONEX [Concomitant]
  6. ALLEGRA [Concomitant]
  7. MAXAIR [Concomitant]

REACTIONS (2)
  - INSOMNIA [None]
  - SOMNOLENCE [None]
